FAERS Safety Report 9801991 (Version 8)
Quarter: 2015Q1

REPORT INFORMATION
  Report Type: Report from Study
  Country: US (occurrence: US)
  Receive Date: 20140107
  Receipt Date: 20150216
  Transmission Date: 20150721
  Serious: Yes (Other)
  Sender: FDA-Public Use
  Company Number: PHEH2013US026609

PATIENT
  Sex: Male

DRUGS (12)
  1. NEVETROL [Concomitant]
     Indication: PRODUCT USED FOR UNKNOWN INDICATION
     Dosage: MATERNAL DOSE
     Route: 064
     Dates: end: 201203
  2. CELEXA [Concomitant]
     Active Substance: CITALOPRAM HYDROBROMIDE
     Indication: DEPRESSION
     Dosage: MATERNAL DOSE
     Route: 064
     Dates: start: 20100601, end: 20120301
  3. MITOXANTRONE [Concomitant]
     Active Substance: MITOXANTRONE HYDROCHLORIDE
     Indication: MULTIPLE SCLEROSIS
     Dosage: MATERNAL DOSE
     Route: 064
     Dates: end: 201203
  4. INTERFERON BETA-1B [Concomitant]
     Active Substance: INTERFERON BETA-1B
     Indication: MULTIPLE SCLEROSIS
     Dosage: MATERNAL DOSE
     Route: 064
  5. REBIF [Concomitant]
     Active Substance: INTERFERON BETA-1A
     Indication: MULTIPLE SCLEROSIS
     Dosage: MATERNAL DOSE
     Route: 064
  6. LORAZEPAN [Concomitant]
     Active Substance: LORAZEPAM
     Indication: ANXIETY
     Dosage: MATERNAL DOSE
     Route: 064
  7. PREDNISONE. [Concomitant]
     Active Substance: PREDNISONE
     Indication: PRODUCT USED FOR UNKNOWN INDICATION
     Dosage: MATERNAL DOSE
     Route: 064
  8. GILENYA [Suspect]
     Active Substance: FINGOLIMOD HYDROCHLORIDE
     Indication: MULTIPLE SCLEROSIS
     Dosage: MATERNAL DOSE: 0.5 MG DAILY
     Route: 064
  9. PRENATAL VITAMINS                  /02014401/ [Concomitant]
     Active Substance: VITAMINS
     Indication: PREGNANCY
     Dosage: MATERNAL DOSE
     Route: 064
  10. XANAX [Concomitant]
     Active Substance: ALPRAZOLAM
     Indication: ANXIETY
     Dosage: MATERNAL DOSE
     Route: 064
  11. EFFEXOR [Concomitant]
     Active Substance: VENLAFAXINE HYDROCHLORIDE
     Indication: DEPRESSION
     Dosage: MATERNAL DOSE
     Route: 064
  12. NATALIZUMAB [Concomitant]
     Active Substance: NATALIZUMAB
     Indication: MULTIPLE SCLEROSIS
     Dosage: MATERNAL DOSE
     Route: 064

REACTIONS (4)
  - Foetal exposure during pregnancy [Unknown]
  - Speech disorder developmental [Recovered/Resolved]
  - Respiratory syncytial virus infection [Recovered/Resolved]
  - Cough [Recovered/Resolved]
